FAERS Safety Report 14400116 (Version 2)
Quarter: 2018Q1

REPORT INFORMATION
  Report Type: Spontaneous
  Country: US (occurrence: US)
  Receive Date: 20180117
  Receipt Date: 20180125
  Transmission Date: 20180509
  Serious: No
  Sender: FDA-Public Use
  Company Number: US-JNJFOC-20171214847

PATIENT
  Sex: Female
  Weight: 59.88 kg

DRUGS (10)
  1. ATORVASTATIN [Concomitant]
     Active Substance: ATORVASTATIN
     Route: 065
  2. FLUTICASONE. [Concomitant]
     Active Substance: FLUTICASONE
     Route: 065
  3. LOSARTIN [Concomitant]
     Active Substance: LOSARTAN
     Route: 065
  4. HYDROCHLOROTHIAZIDE. [Concomitant]
     Active Substance: HYDROCHLOROTHIAZIDE
     Route: 065
  5. MELOXICAM. [Concomitant]
     Active Substance: MELOXICAM
     Route: 065
  6. VITAMIN D [Concomitant]
     Active Substance: CHOLECALCIFEROL
     Route: 065
  7. XARELTO [Suspect]
     Active Substance: RIVAROXABAN
     Indication: ATRIAL FIBRILLATION
     Route: 048
     Dates: start: 20170518, end: 20171205
  8. XARELTO [Suspect]
     Active Substance: RIVAROXABAN
     Indication: CEREBROVASCULAR ACCIDENT PROPHYLAXIS
     Route: 048
     Dates: start: 20170518, end: 20171205
  9. BUPROPION. [Concomitant]
     Active Substance: BUPROPION
     Route: 065
  10. NADOLOL. [Concomitant]
     Active Substance: NADOLOL
     Route: 065

REACTIONS (2)
  - Hypersensitivity [Not Recovered/Not Resolved]
  - Product outer packaging issue [Unknown]

NARRATIVE: CASE EVENT DATE: 2017
